FAERS Safety Report 4747419-7 (Version None)
Quarter: 2005Q3

REPORT INFORMATION
  Report Type: 
  Country: None (occurrence: None)
  Receive Date: 20050815
  Receipt Date: 20050506
  Transmission Date: 20060218
  Serious: No
  Sender: FDA-Public Use
  Company Number: USA050597550

PATIENT
  Sex: Male

DRUGS (1)
  1. CIALIS [Suspect]
     Indication: ERECTILE DYSFUNCTION
     Dosage: 20 MG/DAY/ 1 AS NEEDED
     Dates: start: 20050503

REACTIONS (2)
  - ARTHRALGIA [None]
  - MUSCLE SPASMS [None]
